FAERS Safety Report 23307563 (Version 1)
Quarter: 2023Q4

REPORT INFORMATION
  Report Type: Spontaneous
  Country: US (occurrence: US)
  Receive Date: 20231218
  Receipt Date: 20231218
  Transmission Date: 20240110
  Serious: No
  Sender: FDA-Public Use
  Company Number: US-Calliditas-2023CAL01614

PATIENT
  Age: 58 Year
  Sex: Male
  Weight: 113.9 kg

DRUGS (2)
  1. TARPEYO [Suspect]
     Active Substance: BUDESONIDE
     Indication: IgA nephropathy
     Dosage: 16 MG (4 MG CAPSULES) ONCE DAILY
     Route: 048
     Dates: start: 20230418
  2. POTASSIUM [Concomitant]
     Active Substance: POTASSIUM

REACTIONS (12)
  - Muscle spasms [Unknown]
  - Hair growth abnormal [Unknown]
  - Skin atrophy [Unknown]
  - Product dose omission issue [Unknown]
  - Bladder pain [Unknown]
  - Groin pain [Unknown]
  - Feeling drunk [Unknown]
  - Heart rate increased [Unknown]
  - Heart rate irregular [Unknown]
  - Rhinorrhoea [Unknown]
  - Glomerular filtration rate abnormal [Unknown]
  - Dizziness [Unknown]

NARRATIVE: CASE EVENT DATE: 20231209
